FAERS Safety Report 25201774 (Version 5)
Quarter: 2025Q2

REPORT INFORMATION
  Report Type: Spontaneous
  Country: US (occurrence: US)
  Receive Date: 20250416
  Receipt Date: 20250606
  Transmission Date: 20250717
  Serious: No
  Sender: KARYOPHARM THERAPEUTICS
  Company Number: US-KARYOPHARM-2025KPT100136

PATIENT

DRUGS (20)
  1. SELINEXOR [Suspect]
     Active Substance: SELINEXOR
     Indication: Plasma cell myeloma recurrent
     Route: 048
     Dates: start: 20250407, end: 20250505
  2. SELINEXOR [Suspect]
     Active Substance: SELINEXOR
     Route: 048
     Dates: start: 20250505, end: 2025
  3. ACYCLOVIR [Concomitant]
     Active Substance: ACYCLOVIR
  4. ASPIRIN [Concomitant]
     Active Substance: ASPIRIN
  5. BACTRIM [Concomitant]
     Active Substance: SULFAMETHOXAZOLE\TRIMETHOPRIM
  6. CLINDAMYCIN HYDROCHLORIDE [Concomitant]
     Active Substance: CLINDAMYCIN HYDROCHLORIDE
  7. DEXAMETHASONE [Concomitant]
     Active Substance: DEXAMETHASONE
  8. DILTIAZEM [Concomitant]
     Active Substance: DILTIAZEM
  9. NYSTATIN [Concomitant]
     Active Substance: NYSTATIN
  10. TRAMADOL [Concomitant]
     Active Substance: TRAMADOL
  11. ACETAMINOPHEN [Concomitant]
     Active Substance: ACETAMINOPHEN
  12. EPINEPHRINE [Concomitant]
     Active Substance: EPINEPHRINE
  13. HYDROCORTISONE [Concomitant]
     Active Substance: HYDROCORTISONE
  14. METHYLPREDNISOLONE [Concomitant]
     Active Substance: METHYLPREDNISOLONE
  15. CARFILZOMIB [Concomitant]
     Active Substance: CARFILZOMIB
  16. GRANISETRON [Concomitant]
     Active Substance: GRANISETRON
  17. ZOLEDRONIC ACID [Concomitant]
     Active Substance: ZOLEDRONIC ACID
  18. DULOXETINE [Concomitant]
     Active Substance: DULOXETINE
  19. DIPHENHYDRAMINE [Concomitant]
     Active Substance: DIPHENHYDRAMINE
  20. APAP [Concomitant]
     Active Substance: ACETAMINOPHEN

REACTIONS (14)
  - Chills [Recovered/Resolved]
  - Malaise [Recovering/Resolving]
  - Night sweats [Not Recovered/Not Resolved]
  - Influenza like illness [Recovered/Resolved]
  - Somnolence [Unknown]
  - Ill-defined disorder [Unknown]
  - Drug intolerance [Not Recovered/Not Resolved]
  - Plasma cell myeloma [Unknown]
  - Fatigue [Not Recovered/Not Resolved]
  - Nausea [Not Recovered/Not Resolved]
  - Vomiting [Recovered/Resolved]
  - Constipation [Not Recovered/Not Resolved]
  - Diarrhoea [Recovering/Resolving]
  - Drug ineffective [Unknown]

NARRATIVE: CASE EVENT DATE: 20250101
